FAERS Safety Report 8959590 (Version 1)
Quarter: 2012Q4

REPORT INFORMATION
  Report Type: 
  Country: US (occurrence: US)
  Receive Date: 20121212
  Receipt Date: 20121212
  Transmission Date: 20130627
  Serious: Yes (Hospitalization)
  Sender: FDA-Public Use
  Company Number: US-ROCHE-1167858

PATIENT
  Sex: Female

DRUGS (1)
  1. RITUXAN [Suspect]
     Indication: CRYOGLOBULINAEMIA
     Route: 065

REACTIONS (3)
  - Grand mal convulsion [Unknown]
  - Hypertension [Unknown]
  - Unresponsive to stimuli [Unknown]
